FAERS Safety Report 5083855-X (Version None)
Quarter: 2006Q3

REPORT INFORMATION
  Report Type: 
  Country: None (occurrence: None)
  Receive Date: 20060818
  Receipt Date: 20060616
  Transmission Date: 20061208
  Serious: No
  Sender: FDA-Public Use
  Company Number: US-MERCK-0606USA03014

PATIENT
  Age: 58 Year
  Sex: Female

DRUGS (3)
  1. PRINIVIL [Suspect]
     Route: 048
  2. NORVASC [Concomitant]
     Route: 065
  3. ASPIRIN [Concomitant]
     Route: 065

REACTIONS (2)
  - HYPOACUSIS [None]
  - VISUAL ACUITY REDUCED [None]
